FAERS Safety Report 8525224-3 (Version None)
Quarter: 2012Q3

REPORT INFORMATION
  Report Type: 
  Country: None (occurrence: None)
  Receive Date: 20120720
  Receipt Date: 20120716
  Transmission Date: 20120928
  Serious: Yes (Hospitalization)
  Sender: FDA-Public Use
  Company Number: PHHY2012FR061967

PATIENT
  Sex: Male

DRUGS (7)
  1. MODOPAR [Concomitant]
     Dosage: 1 DF, QD
  2. OXYBUTYNIN [Concomitant]
     Dosage: 2 DF, QD
  3. EXELON [Concomitant]
     Dosage: 1 DF, QD
  4. ESCITALOPRAM [Concomitant]
     Dosage: 1 DF, QD
  5. MODOPAR LP [Concomitant]
     Dosage: 4 DF, QD
  6. CLOZAPINE [Suspect]
     Dosage: 1 DF, QD
     Route: 048
     Dates: start: 20070101
  7. ASPIRIN [Concomitant]
     Dosage: 1 DF, QD

REACTIONS (4)
  - APHASIA [None]
  - HEMIPLEGIA [None]
  - ASTHENIA [None]
  - CEREBROVASCULAR ACCIDENT [None]
